FAERS Safety Report 4456691-2 (Version None)
Quarter: 2004Q3

REPORT INFORMATION
  Report Type: 
  Country: None (occurrence: None)
  Receive Date: 20040923
  Receipt Date: 20040324
  Transmission Date: 20050211
  Serious: Yes (Other)
  Sender: FDA-Public Use
  Company Number: 200412182US

PATIENT
  Sex: Female
  Weight: 123 kg

DRUGS (1)
  1. LOVENOX [Suspect]
     Indication: KNEE ARTHROPLASTY
     Route: 058
     Dates: start: 20030515, end: 20030527

REACTIONS (13)
  - BLISTER [None]
  - CELLULITIS [None]
  - CONTUSION [None]
  - DERMATITIS BULLOUS [None]
  - ERYTHEMA [None]
  - FEELING HOT [None]
  - INJECTION SITE CELLULITIS [None]
  - INJECTION SITE INDURATION [None]
  - INJECTION SITE REACTION [None]
  - INJECTION SITE VESICLES [None]
  - MYOCARDIAL INFARCTION [None]
  - SCAB [None]
  - SKIN DISCOLOURATION [None]
